FAERS Safety Report 21215648 (Version 1)
Quarter: 2022Q3

REPORT INFORMATION
  Report Type: Spontaneous
  Country: US (occurrence: US)
  Receive Date: 20220816
  Receipt Date: 20220816
  Transmission Date: 20221026
  Serious: Yes (Other)
  Sender: FDA-Public Use
  Company Number: US-JNJFOC-20220817910

PATIENT

DRUGS (1)
  1. BENADRYL [Suspect]
     Active Substance: DIPHENHYDRAMINE HYDROCHLORIDE
     Indication: Sleep disorder therapy
     Dosage: TAKING 600-700 MG EACH NIGHT FOR SLEEP
     Route: 065

REACTIONS (4)
  - Brain injury [Unknown]
  - Drug tolerance [Unknown]
  - Product use in unapproved indication [Unknown]
  - Intentional overdose [Unknown]
